FAERS Safety Report 16716259 (Version 1)
Quarter: 2019Q3

REPORT INFORMATION
  Report Type: Not Available
  Country: US (occurrence: US)
  Receive Date: 20190819
  Receipt Date: 20190819
  Transmission Date: 20191005
  Serious: No
  Sender: FDA-Public Use
  Company Number: US-NEUROCRINE BIOSCIENCES INC.-2019NBI02262

PATIENT
  Age: 78 Year
  Sex: Male

DRUGS (13)
  1. DIOVAN [Concomitant]
     Active Substance: VALSARTAN
  2. ASPIRIN. [Concomitant]
     Active Substance: ASPIRIN
  3. LORAZEPAM. [Concomitant]
     Active Substance: LORAZEPAM
  4. ARTANE [Concomitant]
     Active Substance: TRIHEXYPHENIDYL HYDROCHLORIDE
  5. BENZTROPINE. [Concomitant]
     Active Substance: BENZTROPINE
  6. DONEPEZIL. [Concomitant]
     Active Substance: DONEPEZIL
  7. INGREZZA [Suspect]
     Active Substance: VALBENAZINE
     Indication: TARDIVE DYSKINESIA
     Route: 048
     Dates: start: 20190723, end: 2019
  8. AMANTADINE. [Concomitant]
     Active Substance: AMANTADINE HYDROCHLORIDE
  9. TOUJEO [Concomitant]
     Active Substance: INSULIN GLARGINE
  10. LEXAPRO [Concomitant]
     Active Substance: ESCITALOPRAM OXALATE
  11. PRAVASTATIN. [Concomitant]
     Active Substance: PRAVASTATIN
  12. AMLODIPINE [Concomitant]
     Active Substance: AMLODIPINE BESYLATE
  13. AGGRENOX [Concomitant]
     Active Substance: ASPIRIN\DIPYRIDAMOLE

REACTIONS (1)
  - Tremor [Unknown]

NARRATIVE: CASE EVENT DATE: 20190806
